FAERS Safety Report 10173257 (Version 1)
Quarter: 2014Q2

REPORT INFORMATION
  Report Type: Spontaneous
  Country: US (occurrence: None)
  Receive Date: 20140416
  Receipt Date: 20140416
  Transmission Date: 20141212
  Serious: No
  Sender: FDA-Public Use
  Company Number: 163-POMAL-14010646

PATIENT
  Age: 81 Year
  Sex: Female

DRUGS (8)
  1. POMALYST (POMALIDOMIDE) (4 MILLIGRAM, CAPSULES) [Suspect]
     Indication: PLASMA CELL MYELOMA
     Route: 048
     Dates: start: 201304, end: 2013
  2. DEXAMETHASONE (DEXAMETHASONE) [Concomitant]
  3. CARVEDILOL (CARVEDIOLOL) [Concomitant]
  4. LISINOPRIL (LISINOPRIL) [Concomitant]
  5. VITAMIN B6 (PYRIDOXINE HYDROCHLORIDE) [Concomitant]
  6. ACYCLOVIR (ACICLOVIR) [Concomitant]
  7. LYRICA (PREGABALIN) [Concomitant]
  8. VITAMIN D3 (COLECALCIFEROL) [Concomitant]

REACTIONS (2)
  - Abdominal discomfort [None]
  - Laboratory test abnormal [None]
